FAERS Safety Report 6869974-3 (Version None)
Quarter: 2010Q3

REPORT INFORMATION
  Report Type: 
  Country: None (occurrence: None)
  Receive Date: 20100722
  Receipt Date: 20080908
  Transmission Date: 20110219
  Serious: No
  Sender: FDA-Public Use
  Company Number: US-PFIZER INC-2008076084

PATIENT
  Age: 40 Year
  Sex: Female
  Weight: 62.14 kg

DRUGS (1)
  1. CHANTIX [Suspect]
     Indication: SMOKING CESSATION THERAPY
     Dates: end: 20080908

REACTIONS (4)
  - ABDOMINAL PAIN UPPER [None]
  - MALAISE [None]
  - NAUSEA [None]
  - VOMITING [None]
